FAERS Safety Report 4327632-3 (Version None)
Quarter: 2004Q1

REPORT INFORMATION
  Report Type: 
  Country: None (occurrence: None)
  Receive Date: 20040331
  Receipt Date: 20040304
  Transmission Date: 20041129
  Serious: Yes (Hospitalization, Other)
  Sender: FDA-Public Use
  Company Number: PHNU2004DE01102

PATIENT
  Age: 56 Year
  Sex: Female

DRUGS (10)
  1. TRILEPTAL [Suspect]
     Indication: EPILEPSY
     Dosage: 1200MG/DAY
     Route: 048
     Dates: start: 20010101, end: 20040216
  2. TRILEPTAL [Suspect]
     Dosage: 1500 MG/DAY
     Route: 048
     Dates: start: 20040217, end: 20040218
  3. TRILEPTAL [Suspect]
     Dosage: 1800MG/DAY
     Route: 048
     Dates: start: 20040219, end: 20040311
  4. LAMOTRIGINE [Concomitant]
     Indication: EPILEPSY
     Dosage: 50MG/DAY
     Route: 048
     Dates: start: 20040209, end: 20040101
  5. LAMOTRIGINE [Concomitant]
     Dosage: DOSAGE INCREASED
     Route: 048
  6. KEPPRA [Concomitant]
     Indication: EPILEPSY
     Dosage: 500MG/DAY
     Route: 048
     Dates: end: 20040101
  7. KEPPRA [Concomitant]
     Dosage: DOSAGE REDUCED
     Route: 048
     Dates: end: 20040229
  8. PRIMIDONE [Concomitant]
     Indication: EPILEPSY
     Dosage: 62.5MG/DAY
     Route: 048
     Dates: end: 20040101
  9. PRIMIDONE [Concomitant]
     Dosage: DOSAGE REDUCED
     Route: 048
     Dates: end: 20040322
  10. ERGENYL CHRONO [Concomitant]
     Indication: EPILEPSY
     Dosage: INCREASING DOSAGE
     Route: 048
     Dates: start: 20040301

REACTIONS (7)
  - C-REACTIVE PROTEIN INCREASED [None]
  - CONSTIPATION [None]
  - FATIGUE [None]
  - HYPONATRAEMIA [None]
  - STREPTOCOCCAL INFECTION [None]
  - SUBILEUS [None]
  - URINARY TRACT INFECTION [None]
